FAERS Safety Report 5595601-1 (Version None)
Quarter: 2008Q1

REPORT INFORMATION
  Report Type: 
  Country: None (occurrence: None)
  Receive Date: 20080116
  Receipt Date: 20080116
  Transmission Date: 20080703
  Serious: Yes (Hospitalization)
  Sender: FDA-Public Use
  Company Number: None

PATIENT
  Sex: Female
  Weight: 78.5 kg

DRUGS (2)
  1. CARBOPLATIN [Suspect]
     Dosage: 483 MG
     Dates: start: 20071228, end: 20071228
  2. TAXOL [Suspect]
     Dosage: 327 MG
     Dates: start: 20071228, end: 20071228

REACTIONS (1)
  - HAEMOGLOBIN DECREASED [None]
